FAERS Safety Report 8618345 (Version 3)
Quarter: 2013Q1

REPORT INFORMATION
  Report Type: Spontaneous
  Country: US (occurrence: US)
  Receive Date: 20120615
  Receipt Date: 20130103
  Transmission Date: 20140127
  Serious: Yes (Other)
  Sender: FDA-Public Use
  Company Number: US-RB-034702-11

PATIENT
  Age: 27 Year
  Sex: Female

DRUGS (4)
  1. SUBOXONE TABLET [Suspect]
     Indication: DRUG DEPENDENCE
     Route: 065
     Dates: start: 20081022, end: 20111103
  2. GENERIC BUPRENORPHINE [Suspect]
     Indication: DRUG DEPENDENCE
     Dosage: 12-16 MG DAILY, UNKNOWN UNIT DOSE
     Route: 065
  3. SUBUTEX [Suspect]
     Indication: DRUG DEPENDENCE
     Dosage: ONE AND 1/2 TABLET A DAY
     Route: 060
     Dates: start: 20111104
  4. XANAX [Concomitant]
     Indication: PRODUCT USED FOR UNKNOWN INDICATION
     Dosage: DOSING DETAILS UNKNOWN
     Route: 065

REACTIONS (4)
  - Pulmonary embolism [Unknown]
  - Complication of pregnancy [Recovered/Resolved]
  - Exposure during pregnancy [Recovered/Resolved]
  - Wrong technique in drug usage process [Unknown]
